FAERS Safety Report 5717398-4 (Version None)
Quarter: 2008Q2

REPORT INFORMATION
  Report Type: 
  Country: None (occurrence: None)
  Receive Date: 20080424
  Receipt Date: 20080424
  Transmission Date: 20081010
  Serious: Yes (Life-Threatening, Hospitalization)
  Sender: FDA-Public Use
  Company Number: None

PATIENT
  Age: 50 Year
  Sex: Male
  Weight: 117.9352 kg

DRUGS (1)
  1. SINGULAIR [Suspect]
     Indication: SLEEP APNOEA SYNDROME
     Dosage: 10 MG DAILY PO
     Route: 048
     Dates: start: 20030901, end: 20031118

REACTIONS (4)
  - PULSE ABSENT [None]
  - SKIN DISCOLOURATION [None]
  - UNEVALUABLE EVENT [None]
  - UNRESPONSIVE TO STIMULI [None]
